FAERS Safety Report 16118973 (Version 2)
Quarter: 2019Q2

REPORT INFORMATION
  Report Type: Report from Study
  Country: KR (occurrence: KR)
  Receive Date: 20190326
  Receipt Date: 20190510
  Transmission Date: 20190711
  Serious: Yes (Hospitalization)
  Sender: FDA-Public Use
  Company Number: KR-SAMSUNG BIOEPIS-SB-2019-06911

PATIENT
  Age: 53 Year
  Sex: Female
  Weight: 50.2 kg

DRUGS (11)
  1. FOLIC ACID. [Concomitant]
     Active Substance: FOLIC ACID
     Indication: VITAMIN SUPPLEMENTATION
     Dosage: 1 TABLET
     Route: 048
     Dates: start: 20180611
  2. CELEB [Concomitant]
     Indication: RHEUMATOID ARTHRITIS
     Dosage: 1 CAPSULE
     Route: 048
     Dates: start: 20181205
  3. REMALOCE [Suspect]
     Active Substance: INFLIXIMAB
     Route: 065
     Dates: start: 20190222, end: 20190222
  4. ULTRACET SEMI [Concomitant]
     Indication: RHEUMATOID ARTHRITIS
     Dosage: 1 TABLET
     Route: 048
     Dates: start: 20180716
  5. METHOTREXATE. [Suspect]
     Active Substance: METHOTREXATE
     Indication: RHEUMATOID ARTHRITIS
     Dosage: 6 TABLETS
     Route: 048
     Dates: start: 20180611
  6. MUCOSTA [Concomitant]
     Active Substance: REBAMIPIDE
     Indication: GASTRITIS PROPHYLAXIS
     Dosage: 1 TABLET
     Route: 048
     Dates: start: 20181017
  7. EXFORGE [Concomitant]
     Active Substance: AMLODIPINE BESYLATE\VALSARTAN
     Indication: HYPERTENSION
     Dosage: 5/160MG 1 TABLET
     Route: 048
     Dates: start: 20180611
  8. REMALOCE [Suspect]
     Active Substance: INFLIXIMAB
     Indication: RHEUMATOID ARTHRITIS
     Route: 065
     Dates: start: 20181227, end: 20181227
  9. PD [METHYLPREDNISOLONE] [Suspect]
     Active Substance: METHYLPREDNISOLONE
     Indication: RHEUMATOID ARTHRITIS
     Dosage: 1 TABLET
     Route: 048
     Dates: start: 20181017
  10. GLUCOPHAGE [Concomitant]
     Active Substance: METFORMIN HYDROCHLORIDE
     Indication: DIABETES MELLITUS
     Dosage: 1 TABLET
     Route: 048
     Dates: start: 20180830
  11. MULEX [Concomitant]
     Indication: RHEUMATOID ARTHRITIS
     Route: 048
     Dates: start: 20180716

REACTIONS (1)
  - Colitis [Recovered/Resolved]

NARRATIVE: CASE EVENT DATE: 20190303
